FAERS Safety Report 8900038 (Version 1)
Quarter: 2012Q4

REPORT INFORMATION
  Report Type: 
  Country: FR (occurrence: FR)
  Receive Date: 20121109
  Receipt Date: 20121109
  Transmission Date: 20130627
  Serious: Yes (Life-Threatening)
  Sender: FDA-Public Use
  Company Number: FR-BRISTOL-MYERS SQUIBB COMPANY-17085952

PATIENT
  Age: 81 Year
  Sex: Female

DRUGS (3)
  1. COAPROVEL [Suspect]
     Route: 048
  2. LASILIX [Suspect]
     Route: 048
  3. OMNIPAQUE [Suspect]
     Indication: ABDOMINAL PAIN
     Dosage: 1 DF: 350 mg Iodin/mL (iodin) 120 mL
     Route: 042
     Dates: start: 20120806

REACTIONS (2)
  - Renal tubular necrosis [Recovered/Resolved]
  - Renal failure acute [Recovered/Resolved]
